FAERS Safety Report 5139520-3 (Version None)
Quarter: 2006Q4

REPORT INFORMATION
  Report Type: 
  Country: None (occurrence: None)
  Receive Date: 20061024
  Receipt Date: 20061011
  Transmission Date: 20070319
  Serious: Yes (Hospitalization)
  Sender: FDA-Public Use
  Company Number: 2006020774

PATIENT
  Age: 56 Year
  Sex: Male
  Weight: 101 kg

DRUGS (6)
  1. SU-011,248 (SUNITINIB MALATE)  SUTENET [Suspect]
     Indication: RENAL CELL CARCINOMA STAGE UNSPECIFIED
     Dosage: SEE IMAGE
     Route: 048
     Dates: start: 20060112
  2. SU-011,248 (SUNITINIB MALATE)  SUTENET [Suspect]
     Indication: RENAL CELL CARCINOMA STAGE UNSPECIFIED
     Dosage: SEE IMAGE
     Route: 048
     Dates: start: 20060222
  3. LEVOTHYROXINE SODIUM [Concomitant]
  4. MANIDIPINE (MANIDIPINE) [Concomitant]
  5. NEBIVOLOL (NEBIVOLOL) [Concomitant]
  6. ACETAMINOPHEN W/ CODEINE [Concomitant]

REACTIONS (3)
  - CONDITION AGGRAVATED [None]
  - HYPERTENSION [None]
  - NEPHROTIC SYNDROME [None]
